FAERS Safety Report 9090624 (Version 1)
Quarter: 2013Q1

REPORT INFORMATION
  Report Type: Spontaneous
  Country: DE (occurrence: DE)
  Receive Date: 20130201
  Receipt Date: 20130201
  Transmission Date: 20140127
  Serious: Yes (Other)
  Sender: FDA-Public Use
  Company Number: DE-UCBSA-077143

PATIENT
  Sex: Female

DRUGS (3)
  1. LEVETIRACETAM [Suspect]
     Indication: STATUS EPILEPTICUS
  2. VALPROIC ACID [Concomitant]
  3. DIPHENYLHYDANTOIN [Concomitant]

REACTIONS (3)
  - Cognitive disorder [Recovered/Resolved]
  - Status epilepticus [Unknown]
  - Drug ineffective for unapproved indication [Unknown]
